FAERS Safety Report 7842485-4 (Version None)
Quarter: 2011Q4

REPORT INFORMATION
  Report Type: 
  Country: None (occurrence: None)
  Receive Date: 20111025
  Receipt Date: 20111018
  Transmission Date: 20120403
  Serious: Yes (Hospitalization)
  Sender: FDA-Public Use
  Company Number: PHEH2011US07247

PATIENT
  Age: 26 Year
  Sex: Male
  Weight: 38.005 kg

DRUGS (1)
  1. TOBI [Suspect]
     Dosage: 300 MG, TWICE DAILY VIA NEBULIZER IN A CYCLE OF 28 DAYS ON AND 28 DAYS OFF
     Dates: start: 20100824

REACTIONS (1)
  - EYE INFECTION [None]
